FAERS Safety Report 11688431 (Version 2)
Quarter: 2015Q4

REPORT INFORMATION
  Report Type: Spontaneous
  Country: CH (occurrence: CH)
  Receive Date: 20151101
  Receipt Date: 20151116
  Transmission Date: 20160304
  Serious: Yes (Life-Threatening, Hospitalization, Other)
  Sender: FDA-Public Use
  Company Number: CH-TEVA-604593ISR

PATIENT
  Age: 61 Year
  Sex: Male

DRUGS (8)
  1. IMMUNOGLOBULIN G [Concomitant]
     Active Substance: HUMAN IMMUNOGLOBULIN G
     Route: 065
  2. CIPROFLOXACIN. [Suspect]
     Active Substance: CIPROFLOXACIN
     Indication: URINARY TRACT INFECTION
     Route: 065
  3. LEVETIRACETAM. [Suspect]
     Active Substance: LEVETIRACETAM
     Route: 065
  4. PENTOTHAL [Concomitant]
     Active Substance: THIOPENTAL SODIUM
     Route: 065
  5. CLONAZEPAM. [Concomitant]
     Active Substance: CLONAZEPAM
     Route: 065
  6. AZATHIOPRINE. [Suspect]
     Active Substance: AZATHIOPRINE
     Route: 065
  7. VALPROIC ACID. [Concomitant]
     Active Substance: VALPROIC ACID
     Route: 065
  8. PROPOFOL. [Concomitant]
     Active Substance: PROPOFOL
     Route: 065

REACTIONS (13)
  - Myasthenic syndrome [Unknown]
  - Pneumonia [Unknown]
  - Drug level decreased [Unknown]
  - Infection [Unknown]
  - Neuromyopathy [Unknown]
  - Anal abscess [Unknown]
  - Motor dysfunction [Unknown]
  - Cardio-respiratory arrest [Recovered/Resolved]
  - Myoclonus [Unknown]
  - Condition aggravated [Unknown]
  - Dependence on respirator [Unknown]
  - Status epilepticus [Unknown]
  - Aspiration bronchial [Unknown]
